FAERS Safety Report 10223101 (Version 1)
Quarter: 2014Q2

REPORT INFORMATION
  Report Type: Spontaneous
  Country: US (occurrence: None)
  Receive Date: 20140605
  Receipt Date: 20140605
  Transmission Date: 20141212
  Serious: Yes (Other)
  Sender: FDA-Public Use
  Company Number: 14-042

PATIENT
  Age: 88 Year
  Sex: Male
  Weight: 87.09 kg

DRUGS (1)
  1. ACETAMINOPHEN [Suspect]
     Indication: ARTHRALGIA
     Dosage: 1 TABLET/DAY, ORAL
     Route: 048
     Dates: start: 20140407

REACTIONS (2)
  - Vision blurred [None]
  - Blindness [None]
